FAERS Safety Report 12377317 (Version 1)
Quarter: 2016Q2

REPORT INFORMATION
  Report Type: Spontaneous
  Country: US (occurrence: US)
  Receive Date: 20160517
  Receipt Date: 20160517
  Transmission Date: 20160815
  Serious: No
  Sender: FDA-Public Use
  Company Number: US-MALLINCKRODT-T201504932

PATIENT
  Age: 55 Year
  Sex: Male
  Weight: 113 kg

DRUGS (4)
  1. OXYGEN. [Concomitant]
     Active Substance: OXYGEN
     Indication: DYSPNOEA EXERTIONAL
  2. H.P. ACTHAR [Suspect]
     Active Substance: CORTICOTROPIN
     Dosage: 80 UNITS EVERY 3 DAYS
     Route: 058
     Dates: start: 20150125, end: 201512
  3. H.P. ACTHAR [Suspect]
     Active Substance: CORTICOTROPIN
     Indication: SARCOIDOSIS
     Dosage: 80 UNITS TWICE WEEKLY
     Route: 058
     Dates: start: 20150125, end: 201510
  4. H.P. ACTHAR [Suspect]
     Active Substance: CORTICOTROPIN
     Dosage: 80 UNITS TWICE WEEKLY
     Route: 058
     Dates: start: 201510

REACTIONS (14)
  - Product supply issue [Not Recovered/Not Resolved]
  - Hypoaesthesia [Not Recovered/Not Resolved]
  - Dysstasia [Not Recovered/Not Resolved]
  - Confusional state [Recovering/Resolving]
  - Incorrect product storage [Not Recovered/Not Resolved]
  - Palpitations [Not Recovered/Not Resolved]
  - Pain in extremity [Not Recovered/Not Resolved]
  - Dyspnoea [Recovering/Resolving]
  - Arthralgia [Not Recovered/Not Resolved]
  - Chest pain [Recovered/Resolved]
  - Pollakiuria [Not Recovered/Not Resolved]
  - Feeling abnormal [Not Recovered/Not Resolved]
  - Diarrhoea [Not Recovered/Not Resolved]
  - Therapeutic response unexpected [Not Recovered/Not Resolved]

NARRATIVE: CASE EVENT DATE: 2015
